FAERS Safety Report 14926693 (Version 1)
Quarter: 2018Q2

REPORT INFORMATION
  Report Type: Report from Study
  Country: PK (occurrence: PK)
  Receive Date: 20180523
  Receipt Date: 20180523
  Transmission Date: 20180711
  Serious: Yes (Death)
  Sender: FDA-Public Use
  Company Number: PK-ROCHE-2123871

PATIENT
  Age: 44 Year
  Sex: Male

DRUGS (1)
  1. AVASTIN [Suspect]
     Active Substance: BEVACIZUMAB
     Indication: COLON CANCER
     Route: 042
     Dates: start: 20171221

REACTIONS (4)
  - Flatulence [Fatal]
  - Diarrhoea [Fatal]
  - Death [Fatal]
  - Dyspepsia [Fatal]

NARRATIVE: CASE EVENT DATE: 20180513
